FAERS Safety Report 8237915-2 (Version None)
Quarter: 2012Q1

REPORT INFORMATION
  Report Type: 
  Country: None (occurrence: None)
  Receive Date: 20120327
  Receipt Date: 20120321
  Transmission Date: 20120608
  Serious: Yes (Other)
  Sender: FDA-Public Use
  Company Number: US-PFIZER INC-2012074845

PATIENT
  Sex: Female

DRUGS (8)
  1. ULTRAM [Concomitant]
     Dosage: 50 MG, 3X/DAY
     Route: 048
  2. VITAMIN B-12 [Concomitant]
     Dosage: 2500 UG, DAILY
     Route: 060
  3. NAPROSYN [Concomitant]
     Dosage: 500 MG, 2X/DAY WITH MEALS
     Route: 048
  4. PRILOSEC [Concomitant]
     Dosage: 20 MG, DAILY
     Route: 048
  5. GEODON [Suspect]
     Dosage: 20 MG, 2X/DAY WITH MEALS
     Route: 048
  6. SEROQUEL [Concomitant]
     Dosage: 100 MG, NIGHTY
     Route: 048
  7. BUSPAR [Concomitant]
     Dosage: 10 MG, 3X/DAY
     Route: 048
  8. LEXAPRO [Concomitant]
     Dosage: 20 MG, DAILY
     Route: 048

REACTIONS (7)
  - ARTHRALGIA [None]
  - VITAMIN B12 DEFICIENCY [None]
  - BIPOLAR I DISORDER [None]
  - BACK PAIN [None]
  - ANXIETY DISORDER [None]
  - DEPRESSION [None]
  - GASTROOESOPHAGEAL REFLUX DISEASE [None]
